FAERS Safety Report 5680504-4 (Version None)
Quarter: 2008Q1

REPORT INFORMATION
  Report Type: 
  Country: None (occurrence: None)
  Receive Date: 20080326
  Receipt Date: 20080324
  Transmission Date: 20080703
  Serious: Yes (Other)
  Sender: FDA-Public Use
  Company Number: JP-ASTRAZENECA-2008AP02091

PATIENT
  Age: 70 Year

DRUGS (1)
  1. DIPRIVAN [Suspect]
     Dosage: UNKNOWN DOSE
     Route: 041

REACTIONS (2)
  - INJECTION SITE EXTRAVASATION [None]
  - SKIN ULCER [None]
